FAERS Safety Report 8007281-6 (Version None)
Quarter: 2011Q4

REPORT INFORMATION
  Report Type: 
  Country: None (occurrence: None)
  Receive Date: 20111227
  Receipt Date: 20111221
  Transmission Date: 20120403
  Serious: Yes (Other)
  Sender: FDA-Public Use
  Company Number: US-PFIZER INC-2011088445

PATIENT
  Sex: Female
  Weight: 55.329 kg

DRUGS (5)
  1. LEVOTHYROXINE SODIUM [Suspect]
     Indication: THYROID DISORDER
     Dosage: 25 I?G, UNK
     Route: 048
  2. ZOLOFT [Suspect]
     Indication: DEPRESSION
     Dosage: 50 MG, 1X/DAY
     Route: 048
     Dates: start: 20100101, end: 20100101
  3. ZOLOFT [Suspect]
     Dosage: 25 MG, 1X/DAY
     Route: 048
     Dates: start: 20100101
  4. NEURONTIN [Suspect]
     Dosage: UNK
     Route: 048
  5. CLONAZEPAM [Concomitant]
     Dosage: UNK

REACTIONS (4)
  - NAUSEA [None]
  - MALAISE [None]
  - ABNORMAL CLOTTING FACTOR [None]
  - HEADACHE [None]
